FAERS Safety Report 21313177 (Version 1)
Quarter: 2022Q3

REPORT INFORMATION
  Report Type: Spontaneous
  Country: US (occurrence: US)
  Receive Date: 20220909
  Receipt Date: 20220909
  Transmission Date: 20221027
  Serious: Yes (Hospitalization, Other)
  Sender: FDA-Public Use
  Company Number: US-BAYER-2022A123890

PATIENT
  Age: 63 Year
  Sex: Female

DRUGS (1)
  1. ASPIRIN [Suspect]
     Active Substance: ASPIRIN

REACTIONS (5)
  - Small intestinal haemorrhage [None]
  - Haemodynamic instability [None]
  - Hypotension [None]
  - Haemoglobin decreased [None]
  - Melaena [None]
